FAERS Safety Report 7487907-6 (Version None)
Quarter: 2011Q2

REPORT INFORMATION
  Report Type: 
  Country: None (occurrence: None)
  Receive Date: 20110518
  Receipt Date: 20110511
  Transmission Date: 20111010
  Serious: Yes (Hospitalization)
  Sender: FDA-Public Use
  Company Number: IT-JNJFOC-20110507035

PATIENT
  Age: 41 Year
  Sex: Female

DRUGS (1)
  1. TRAMADOL HCL [Suspect]
     Indication: BONE PAIN
     Route: 048
     Dates: start: 20110105, end: 20110105

REACTIONS (2)
  - PRESYNCOPE [None]
  - ASTHENIA [None]
